FAERS Safety Report 7437009-X (Version None)
Quarter: 2011Q2

REPORT INFORMATION
  Report Type: 
  Country: None (occurrence: None)
  Receive Date: 20110415
  Receipt Date: 20110331
  Transmission Date: 20111010
  Serious: Yes (Other)
  Sender: FDA-Public Use
  Company Number: 20110260

PATIENT
  Age: 43 Year
  Sex: Female

DRUGS (8)
  1. CYMBALTA [Concomitant]
  2. TOPAMAX [Concomitant]
  3. PROMETHAZINE [Concomitant]
  4. DEXAMETHASONE SODIUM PHOSPHATE [Suspect]
     Indication: ADDISON'S DISEASE
     Dosage: 4 ML - 4 TIMES PER MONTH INTRAMUSCULAR
     Route: 030
     Dates: start: 20050101
  5. VALIUM [Concomitant]
  6. CORTES [Concomitant]
  7. OXYCONTIN [Concomitant]
  8. OXYCODONE [Concomitant]

REACTIONS (3)
  - CHEST PAIN [None]
  - ABDOMINAL PAIN UPPER [None]
  - DIZZINESS [None]
